FAERS Safety Report 10120429 (Version 5)
Quarter: 2014Q2

REPORT INFORMATION
  Report Type: Spontaneous
  Country: CH (occurrence: CH)
  Receive Date: 20140425
  Receipt Date: 20140619
  Transmission Date: 20141212
  Serious: Yes (Other)
  Sender: FDA-Public Use
  Company Number: CH-PFIZER INC-2014112348

PATIENT
  Age: 73 Year
  Sex: Female

DRUGS (1)
  1. CLIMOPAX [Suspect]
     Indication: MENOPAUSAL SYMPTOMS
     Dosage: 0.625MG/5MG, ONCE DAILY
     Dates: start: 2000, end: 20140420

REACTIONS (4)
  - Diplopia [Not Recovered/Not Resolved]
  - Cataract [Recovered/Resolved]
  - Night sweats [Recovered/Resolved]
  - Nuchal rigidity [Recovered/Resolved]
